FAERS Safety Report 15440276 (Version 1)
Quarter: 2018Q4

REPORT INFORMATION
  Report Type: Spontaneous
  Country: DE (occurrence: DE)
  Receive Date: 20180928
  Receipt Date: 20180928
  Transmission Date: 20190204
  Serious: Yes (Other)
  Sender: FDA-Public Use
  Company Number: DE-ASTRAZENECA-2012SE12781

PATIENT
  Age: 80 Year
  Sex: Female

DRUGS (25)
  1. QUETIAPINE. [Suspect]
     Active Substance: QUETIAPINE
     Indication: MAJOR DEPRESSION
     Route: 048
     Dates: start: 20110822, end: 20110825
  2. HALOPERIDOL. [Suspect]
     Active Substance: HALOPERIDOL
     Route: 048
     Dates: start: 20110906, end: 20110912
  3. DOMINAL (PROTHIPENDYL HYDROCHLORIDE) [Suspect]
     Active Substance: PROTHIPENDYL HYDROCHLORIDE
     Route: 048
     Dates: start: 20110722, end: 20110825
  4. LITHIUM. [Suspect]
     Active Substance: LITHIUM
     Route: 048
     Dates: start: 20110726, end: 20110811
  5. AGOMELATINE [Suspect]
     Active Substance: AGOMELATINE
     Route: 048
     Dates: start: 20110811, end: 20110817
  6. PHENPRO [Concomitant]
     Active Substance: PHENPROCOUMON
     Route: 048
     Dates: start: 20110722
  7. DOMINAL (PROTHIPENDYL HYDROCHLORIDE) [Suspect]
     Active Substance: PROTHIPENDYL HYDROCHLORIDE
     Route: 048
     Dates: start: 20110826, end: 20110904
  8. LISINOPRIL. [Concomitant]
     Active Substance: LISINOPRIL
     Route: 048
     Dates: start: 20110827
  9. ALENDRONAT [Concomitant]
     Active Substance: ALENDRONATE SODIUM
     Route: 048
  10. QUETIAPINE. [Suspect]
     Active Substance: QUETIAPINE
     Indication: MAJOR DEPRESSION
     Route: 048
     Dates: start: 20110830, end: 20110901
  11. QUETIAPINE. [Suspect]
     Active Substance: QUETIAPINE
     Indication: MAJOR DEPRESSION
     Route: 048
     Dates: start: 20110906, end: 20110911
  12. AGOMELATINE [Suspect]
     Active Substance: AGOMELATINE
     Route: 048
     Dates: start: 20110818, end: 20110914
  13. LISINOPRIL. [Concomitant]
     Active Substance: LISINOPRIL
     Route: 048
     Dates: start: 20110811, end: 20110826
  14. HALOPERIDOL. [Suspect]
     Active Substance: HALOPERIDOL
     Route: 048
     Dates: start: 20110913, end: 20110914
  15. LITHIUM. [Suspect]
     Active Substance: LITHIUM
     Route: 048
     Dates: end: 20110725
  16. LITHIUM. [Suspect]
     Active Substance: LITHIUM
     Route: 048
     Dates: start: 20110914, end: 20110921
  17. QUETIAPINE. [Suspect]
     Active Substance: QUETIAPINE
     Indication: MAJOR DEPRESSION
     Route: 048
     Dates: start: 20110902, end: 20110905
  18. QUETIAPINE. [Suspect]
     Active Substance: QUETIAPINE
     Indication: MAJOR DEPRESSION
     Route: 048
     Dates: start: 20110912
  19. SERTRALINE [Suspect]
     Active Substance: SERTRALINE HYDROCHLORIDE
     Route: 048
     Dates: start: 20110915, end: 20110919
  20. LITHIUM. [Suspect]
     Active Substance: LITHIUM
     Route: 048
     Dates: start: 20110922
  21. DOMINAL (PROTHIPENDYL HYDROCHLORIDE) [Suspect]
     Active Substance: PROTHIPENDYL HYDROCHLORIDE
     Route: 048
     Dates: start: 20110905, end: 20110914
  22. LISINOPRIL. [Concomitant]
     Active Substance: LISINOPRIL
     Route: 048
     Dates: start: 20110722, end: 20110810
  23. QUETIAPINE. [Suspect]
     Active Substance: QUETIAPINE
     Indication: MAJOR DEPRESSION
     Route: 048
     Dates: start: 20110826, end: 20110829
  24. SERTRALINE [Suspect]
     Active Substance: SERTRALINE HYDROCHLORIDE
     Route: 048
     Dates: start: 20110920
  25. MACROGOL [Concomitant]
     Active Substance: POLYETHYLENE GLYCOLS
     Dosage: 1 BAG
     Route: 048

REACTIONS (3)
  - Salivary hypersecretion [Recovered/Resolved]
  - Gait inability [Recovered/Resolved]
  - Dysphagia [Recovered/Resolved]

NARRATIVE: CASE EVENT DATE: 20110915
